FAERS Safety Report 6294418-2 (Version None)
Quarter: 2009Q3

REPORT INFORMATION
  Report Type: 
  Country: None (occurrence: None)
  Receive Date: 20090803
  Receipt Date: 20090720
  Transmission Date: 20100115
  Serious: Yes (Hospitalization, Other)
  Sender: FDA-Public Use
  Company Number: US-ROCHE-645237

PATIENT
  Age: 67 Year
  Sex: Female

DRUGS (1)
  1. CELLCEPT [Suspect]
     Route: 048
     Dates: start: 20050915

REACTIONS (3)
  - LUNG TRANSPLANT REJECTION [None]
  - PNEUMONIA [None]
  - THROMBOSIS [None]
